FAERS Safety Report 5485027-3 (Version None)
Quarter: 2007Q4

REPORT INFORMATION
  Report Type: 
  Country: None (occurrence: None)
  Receive Date: 20071015
  Receipt Date: 20071003
  Transmission Date: 20080405
  Serious: Yes (Other)
  Sender: FDA-Public Use
  Company Number: PHHO2007BE14424

PATIENT
  Age: 76 Year
  Sex: Female
  Weight: 75 kg

DRUGS (4)
  1. LETROZOLE [Suspect]
     Indication: BREAST CANCER
     Dosage: 2.5 MG, QD
     Route: 048
     Dates: start: 20041108
  2. ZOLEDRONIC ACID [Suspect]
     Dosage: 4MG, 6 MONTHS
     Route: 042
     Dates: start: 20041108, end: 20070515
  3. CACIT VITAMINE D3 [Concomitant]
     Indication: PROPHYLAXIS
  4. GLUCINAN [Concomitant]
     Indication: DIABETES MELLITUS

REACTIONS (8)
  - ABDOMINAL DISCOMFORT [None]
  - DENTAL FISTULA [None]
  - OEDEMA MOUTH [None]
  - OSTEONECROSIS [None]
  - PRIMARY SEQUESTRUM [None]
  - STOMATITIS [None]
  - TOOTH ABSCESS [None]
  - TOOTH EXTRACTION [None]
